FAERS Safety Report 11823945 (Version 2)
Quarter: 2015Q4

REPORT INFORMATION
  Report Type: Report from Study
  Country: KR (occurrence: KR)
  Receive Date: 20151210
  Receipt Date: 20151217
  Transmission Date: 20160305
  Serious: Yes (Hospitalization)
  Sender: FDA-Public Use
  Company Number: KR-BAUSCH-BL-2015-029823

PATIENT
  Age: 65 Year
  Sex: Male

DRUGS (4)
  1. 5-FU [Suspect]
     Active Substance: FLUOROURACIL
     Indication: COLON CANCER
     Dosage: 400 MILLIGRAM/ SQUARE METER; EVERY CYCLE
     Route: 065
     Dates: start: 20151118, end: 20151118
  2. LEUCOVORIN. [Suspect]
     Active Substance: LEUCOVORIN
     Indication: COLON CANCER
     Dosage: 200 MILLIGRAM/ SQUARE METER; EVERY CYCLE
     Route: 065
     Dates: start: 20151118, end: 20151118
  3. 5-FU [Suspect]
     Active Substance: FLUOROURACIL
     Dosage: 2400 MILLIGRAM/ SQUARE METER; EVERY CYCLE
     Route: 065
     Dates: start: 20151118, end: 20151118
  4. OXALIPLATIN. [Suspect]
     Active Substance: OXALIPLATIN
     Indication: COLON CANCER
     Dosage: 85 MILLIGRAM/ SQUARE METER; EVERY CYCLE
     Route: 065
     Dates: start: 20151118, end: 20151118

REACTIONS (1)
  - Diarrhoea [Recovered/Resolved]

NARRATIVE: CASE EVENT DATE: 20151120
